FAERS Safety Report 10515548 (Version 1)
Quarter: 2014Q4

REPORT INFORMATION
  Report Type: Spontaneous
  Country: JP (occurrence: None)
  Receive Date: 20141009
  Receipt Date: 20141009
  Transmission Date: 20150528
  Serious: Yes (Other)
  Sender: FDA-Public Use
  Company Number: COR_00095_2014

PATIENT
  Age: 74 Year
  Sex: Female

DRUGS (3)
  1. PACLITAXEL. [Suspect]
     Active Substance: PACLITAXEL
     Indication: THYMOMA MALIGNANT
     Dosage: (DF)
  2. CARBOPLATIN. [Suspect]
     Active Substance: CARBOPLATIN
     Indication: THYMOMA MALIGNANT
     Dosage: (DF) (AUC, 5, FOR 4 CYCLES)
  3. S-1 [Suspect]
     Active Substance: GIMERACIL\OTERACIL\TEGAFUR
     Indication: THYMOMA MALIGNANT
     Dosage: ON DAYS 1-14, REPEATED EVERY 3 OR 4 WEEKS, FOR 4 CYCLES
     Route: 048

REACTIONS (11)
  - Metastases to pleura [None]
  - Cardiopulmonary failure [None]
  - Haematotoxicity [None]
  - Neutropenia [None]
  - Mediastinal mass [None]
  - Thrombocytopenia [None]
  - Pericardial effusion [None]
  - Hypersensitivity [None]
  - Nausea [None]
  - Decreased appetite [None]
  - Fatigue [None]
